FAERS Safety Report 8994467 (Version 1)
Quarter: 2012Q4

REPORT INFORMATION
  Report Type: Spontaneous
  Country: US (occurrence: None)
  Receive Date: 20121228
  Receipt Date: 20121228
  Transmission Date: 20130627
  Serious: Yes (Life-Threatening)
  Sender: FDA-Public Use
  Company Number: None

PATIENT
  Sex: Male
  Weight: 122.47 kg

DRUGS (1)
  1. ATORVASTATIN [Suspect]

REACTIONS (4)
  - Haemorrhage [None]
  - Blood iron decreased [None]
  - Product quality issue [None]
  - Product contamination physical [None]
